FAERS Safety Report 9814801 (Version 1)
Quarter: 2014Q1

REPORT INFORMATION
  Report Type: Spontaneous
  Country: US (occurrence: US)
  Receive Date: 20140113
  Receipt Date: 20140113
  Transmission Date: 20141002
  Serious: No
  Sender: FDA-Public Use
  Company Number: US-TEVA-426527USA

PATIENT
  Sex: 0

DRUGS (1)
  1. DORZOLAMIDE [Suspect]
     Route: 047

REACTIONS (3)
  - Headache [Unknown]
  - Temperature intolerance [Unknown]
  - Pain [Unknown]
